FAERS Safety Report 12000648 (Version 1)
Quarter: 2016Q1

REPORT INFORMATION
  Report Type: Spontaneous
  Country: BE (occurrence: BE)
  Receive Date: 20160204
  Receipt Date: 20160204
  Transmission Date: 20160526
  Serious: Yes (Hospitalization, Other)
  Sender: FDA-Public Use
  Company Number: BE-AMGEN-BELSP2016010135

PATIENT
  Age: 78 Year
  Sex: Male
  Weight: 81 kg

DRUGS (7)
  1. NEULASTA [Suspect]
     Active Substance: PEGFILGRASTIM
     Indication: METASTASES TO BONE
     Route: 065
  2. XGEVA [Suspect]
     Active Substance: DENOSUMAB
     Indication: METASTASES TO BONE
     Dosage: UNK, 3 TO 4 WEEK
     Route: 058
     Dates: start: 20160119
  3. PANTOMED                           /00178901/ [Concomitant]
     Dosage: 20 TO 40 MG, QD
  4. TAXOTERE [Concomitant]
     Active Substance: DOCETAXEL
     Indication: DISEASE PROGRESSION
  5. PARACETAMOL [Concomitant]
     Active Substance: ACETAMINOPHEN
     Dosage: 2 UNK, AS NECESSARY
  6. IBUPROFEN. [Concomitant]
     Active Substance: IBUPROFEN
     Dosage: 600 MG, AS NECESSARY
  7. DECAPEPTYL                         /00486501/ [Concomitant]
     Active Substance: GONADORELIN
     Dosage: 11.25 MG, Q3MO

REACTIONS (9)
  - Vomiting [Unknown]
  - Deafness [Unknown]
  - Thrombocytopenia [Unknown]
  - Febrile neutropenia [Unknown]
  - General physical health deterioration [Unknown]
  - Nausea [Unknown]
  - Chills [Unknown]
  - Pyrexia [Unknown]
  - Diarrhoea [Unknown]

NARRATIVE: CASE EVENT DATE: 20160120
